FAERS Safety Report 11243709 (Version 1)
Quarter: 2015Q3

REPORT INFORMATION
  Report Type: Report from Study
  Country: US (occurrence: US)
  Receive Date: 20150707
  Receipt Date: 20150707
  Transmission Date: 20151125
  Serious: Yes (Other)
  Sender: FDA-Public Use
  Company Number: US-GILEAD-2015-0162083

PATIENT
  Age: 57 Year
  Sex: Male

DRUGS (2)
  1. REVATIO [Concomitant]
     Active Substance: SILDENAFIL CITRATE
  2. AMBRISENTAN [Suspect]
     Active Substance: AMBRISENTAN
     Indication: PRODUCT USED FOR UNKNOWN INDICATION
     Dosage: 10 MG, QD
     Route: 065
     Dates: start: 20120830

REACTIONS (6)
  - Pain in extremity [Unknown]
  - Angina pectoris [Unknown]
  - Dyspnoea exertional [Unknown]
  - Alcoholic liver disease [Unknown]
  - Gait disturbance [Unknown]
  - Oedema peripheral [Unknown]
